FAERS Safety Report 7930710-0 (Version None)
Quarter: 2011Q4

REPORT INFORMATION
  Report Type: 
  Country: None (occurrence: None)
  Receive Date: 20111121
  Receipt Date: 20111115
  Transmission Date: 20120403
  Serious: Yes (Other)
  Sender: FDA-Public Use
  Company Number: US-PFIZER INC-2011280770

PATIENT
  Sex: Female

DRUGS (2)
  1. PACLITAXEL [Concomitant]
     Indication: OVARIAN CANCER
  2. CARBOPLATIN [Suspect]
     Indication: OVARIAN CANCER

REACTIONS (2)
  - RENAL FAILURE ACUTE [None]
  - HAEMATURIA [None]
